FAERS Safety Report 16011025 (Version 2)
Quarter: 2019Q1

REPORT INFORMATION
  Report Type: Spontaneous
  Country: GB (occurrence: GB)
  Receive Date: 20190227
  Receipt Date: 20190316
  Transmission Date: 20190418
  Serious: Yes (Other)
  Sender: FDA-Public Use
  Company Number: GB-ACCORD-109147

PATIENT
  Age: 45 Year
  Sex: Male
  Weight: 104.77 kg

DRUGS (4)
  1. METFORMIN [Concomitant]
     Active Substance: METFORMIN HYDROCHLORIDE
  2. SIMVASTATIN. [Suspect]
     Active Substance: SIMVASTATIN
     Indication: BLOOD CHOLESTEROL INCREASED
     Dosage: 10-20MG
     Route: 048
     Dates: start: 201003, end: 201807
  3. VALSARTAN. [Concomitant]
     Active Substance: VALSARTAN
  4. TADALAFIL. [Concomitant]
     Active Substance: TADALAFIL

REACTIONS (10)
  - Arthralgia [Not Recovered/Not Resolved]
  - Lacrimation increased [Recovering/Resolving]
  - Epistaxis [Recovered/Resolved]
  - Rash [Not Recovered/Not Resolved]
  - Alopecia [Unknown]
  - Tendon pain [Not Recovered/Not Resolved]
  - Skin infection [Unknown]
  - Neuralgia [Not Recovered/Not Resolved]
  - Floppy eyelid syndrome [Recovering/Resolving]
  - Dry eye [Recovering/Resolving]

NARRATIVE: CASE EVENT DATE: 201003
